FAERS Safety Report 5108612-7 (Version None)
Quarter: 2006Q3

REPORT INFORMATION
  Report Type: 
  Country: None (occurrence: None)
  Receive Date: 20060915
  Receipt Date: 20060830
  Transmission Date: 20061208
  Serious: Yes (Life-Threatening, Hospitalization, Disabling)
  Sender: FDA-Public Use
  Company Number: PAR_0805_2006

PATIENT
  Age: 64 Year
  Sex: Female

DRUGS (7)
  1. IBUPROFEN [Suspect]
     Dosage: DF
  2. NAPROXEN [Suspect]
     Indication: ARTHRALGIA
     Dosage: 250 MG TID PO
     Route: 048
     Dates: start: 20051004
  3. AMOXICILLIN [Suspect]
     Indication: LOWER RESPIRATORY TRACT INFECTION
     Dosage: 500 MG TID PO
     Route: 048
     Dates: start: 20060508, end: 20060512
  4. ADCAL D3 [Concomitant]
  5. BUMETANIDE [Concomitant]
  6. PARACETAMOL WITH CODEINE PHOSPHATE [Concomitant]
  7. KLIOVANCE [Concomitant]

REACTIONS (3)
  - AUTOIMMUNE HEPATITIS [None]
  - ENCEPHALITIS [None]
  - HEPATIC NECROSIS [None]
